FAERS Safety Report 17717522 (Version 1)
Quarter: 2020Q2

REPORT INFORMATION
  Report Type: Spontaneous
  Country: CN (occurrence: CN)
  Receive Date: 20200428
  Receipt Date: 20200428
  Transmission Date: 20200714
  Serious: Yes (Other)
  Sender: FDA-Public Use
  Company Number: CN-BAXTER-2020BAX008920

PATIENT
  Age: 36 Year
  Sex: Female
  Weight: 48 kg

DRUGS (8)
  1. 0.9% SODIUM CHLORIDE INJECTION [Suspect]
     Active Substance: SODIUM CHLORIDE
     Dosage: RITUXIMAB 540 MG + 0.9% NS 600 ML
     Route: 041
     Dates: start: 20200401, end: 20200401
  2. 0.9% SODIUM CHLORIDE INJECTION [Suspect]
     Active Substance: SODIUM CHLORIDE
     Dosage: DOXORUBICIN HYDROCHLORIDE 70 MG + 0.9% NS 40 ML
     Route: 042
     Dates: start: 20200402, end: 20200402
  3. 0.9% SODIUM CHLORIDE INJECTION [Suspect]
     Active Substance: SODIUM CHLORIDE
     Dosage: VINCRISTINE SULFATE 2 MG + 0.9% NS 40 ML, TUMOR CHEMICAL DEVICES
     Route: 042
     Dates: start: 20200402, end: 20200402
  4. ENDOXAN [Suspect]
     Active Substance: CYCLOPHOSPHAMIDE
     Indication: GASTROINTESTINAL LYMPHOMA
     Dosage: ENDOXAN + 0.9% NS 40 ML, TUMOR CHEMICAL DEVICES
     Route: 042
     Dates: start: 20200402, end: 20200402
  5. 0.9% SODIUM CHLORIDE INJECTION [Suspect]
     Active Substance: SODIUM CHLORIDE
     Indication: MEDICATION DILUTION
     Dosage: ENDOXAN + 0.9% NS 40 ML, TUMOR CHEMICAL DEVICES
     Route: 042
     Dates: start: 20200402, end: 20200402
  6. DOXORUBICIN HYDROCHLORIDE. [Suspect]
     Active Substance: DOXORUBICIN HYDROCHLORIDE
     Indication: GASTROINTESTINAL LYMPHOMA
     Dosage: DOXORUBICIN HYDROCHLORIDE 70 MG + 0.9% NS 40 ML
     Route: 042
     Dates: start: 20200402, end: 20200402
  7. RITUXIMAB. [Suspect]
     Active Substance: RITUXIMAB
     Indication: GASTROINTESTINAL LYMPHOMA
     Dosage: RITUXIMAB 540 MG + 0.9% NS 600 ML
     Route: 041
     Dates: start: 20200401, end: 20200401
  8. VINCRISTINE SULFATE. [Suspect]
     Active Substance: VINCRISTINE SULFATE
     Indication: GASTROINTESTINAL LYMPHOMA
     Dosage: VINCRISTINE SULFATE 2 MG + 0.9% NS 40 ML, TUMOR CHEMICAL DEVICES
     Route: 042
     Dates: start: 20200402, end: 20200402

REACTIONS (2)
  - White blood cell count decreased [Recovering/Resolving]
  - Neutrophil count decreased [Recovering/Resolving]

NARRATIVE: CASE EVENT DATE: 20200414
